FAERS Safety Report 9675138 (Version 1)
Quarter: 2013Q4

REPORT INFORMATION
  Report Type: Spontaneous
  Country: US (occurrence: None)
  Receive Date: 20131105
  Receipt Date: 20131105
  Transmission Date: 20140711
  Serious: Yes (Death, Other)
  Sender: FDA-Public Use
  Company Number: ADR-2013-02003

PATIENT
  Age: 74 Year
  Sex: Female

DRUGS (2)
  1. BACLOFEN [Suspect]
  2. DILAUDID [Suspect]

REACTIONS (1)
  - Breast cancer [None]
